FAERS Safety Report 17003664 (Version 3)
Quarter: 2019Q4

REPORT INFORMATION
  Report Type: Spontaneous
  Country: US (occurrence: US)
  Receive Date: 20191107
  Receipt Date: 20191230
  Transmission Date: 20200122
  Serious: No
  Sender: FDA-Public Use
  Company Number: US-BAYER-2019-201026

PATIENT
  Age: 73 Year
  Sex: Female
  Weight: 84 kg

DRUGS (3)
  1. CLARITIN [Suspect]
     Active Substance: LORATADINE
     Indication: NASOPHARYNGITIS
  2. ISOLIN [INOSINE PRANOBEX] [Concomitant]
  3. CLARITIN [Suspect]
     Active Substance: LORATADINE
     Indication: HYPERSENSITIVITY
     Dosage: 1 DF, QD
     Route: 048
     Dates: start: 201901, end: 20191106

REACTIONS (3)
  - Abdominal pain upper [Not Recovered/Not Resolved]
  - Product commingling [None]
  - Product packaging difficult to open [None]
